FAERS Safety Report 18630194 (Version 8)
Quarter: 2021Q3

REPORT INFORMATION
  Report Type: Report from Study
  Country: GB (occurrence: GB)
  Receive Date: 20201217
  Receipt Date: 20210930
  Transmission Date: 20211014
  Serious: Yes (Death, Hospitalization)
  Sender: FDA-Public Use
  Company Number: GB-ROCHE-2729385

PATIENT
  Age: 59 Year
  Sex: Male
  Weight: 58.6 kg

DRUGS (22)
  1. ATEZOLIZUMAB. [Suspect]
     Active Substance: ATEZOLIZUMAB
     Indication: METASTATIC NEOPLASM
     Dosage: DATE OF LAST DOSE PRIOR TO EVENT ONSET: 01/DEC/2020?PERMANENTLY DISCONTINUED
     Route: 042
     Dates: start: 20201020, end: 20201209
  2. OMEPRAZOLE. [Concomitant]
     Active Substance: OMEPRAZOLE
     Route: 065
  3. CODEINE LINCTUS [Concomitant]
     Active Substance: CHLOROFORM\CODEINE PHOSPHATE\DRIMIA MARITIMA BULB
     Indication: COUGH
     Route: 048
     Dates: start: 20200309
  4. CHLORPHENAMINE [Concomitant]
     Active Substance: CHLORPHENIRAMINE MALEATE
     Route: 042
     Dates: start: 20201201, end: 20201201
  5. MORPHINE SULFATE. [Concomitant]
     Active Substance: MORPHINE SULFATE
     Dates: start: 20201006
  6. PARACETAMOL [Concomitant]
     Active Substance: ACETAMINOPHEN
     Route: 048
     Dates: start: 20201124, end: 20201124
  7. BISOPROLOL [Concomitant]
     Active Substance: BISOPROLOL
     Indication: EJECTION FRACTION DECREASED
     Route: 048
     Dates: start: 20201211, end: 20201211
  8. BISOPROLOL [Concomitant]
     Active Substance: BISOPROLOL
     Route: 048
     Dates: start: 20201218
  9. MORPHINE SULFATE. [Concomitant]
     Active Substance: MORPHINE SULFATE
     Dates: start: 20201006
  10. PARACETAMOL [Concomitant]
     Active Substance: ACETAMINOPHEN
     Route: 048
     Dates: start: 20201110, end: 20201110
  11. AUTOGENE CEVUMERAN [Suspect]
     Active Substance: AUTOGENE CEVUMERAN
     Indication: METASTATIC NEOPLASM
     Dosage: ON 24/NOV/2020, THE PATIENT RECEIVED THE MOST RECENT DOSE OF OF STUDY DRUG (25 UG) PRIOR TO AE.?ON 2
     Route: 042
     Dates: start: 20200929
  12. DOCUSATE SODIUM. [Concomitant]
     Active Substance: DOCUSATE SODIUM
     Indication: CONSTIPATION
     Route: 048
     Dates: start: 20201005
  13. CHLORPHENAMINE [Concomitant]
     Active Substance: CHLORPHENIRAMINE MALEATE
     Route: 042
     Dates: start: 20201124, end: 20201124
  14. PARACETAMOL [Concomitant]
     Active Substance: ACETAMINOPHEN
     Route: 048
     Dates: start: 20201201, end: 20201201
  15. NORMAL SALINE [Concomitant]
     Active Substance: SODIUM CHLORIDE
     Route: 042
     Dates: start: 20201124, end: 20201124
  16. RAMIPRIL. [Concomitant]
     Active Substance: RAMIPRIL
     Indication: EJECTION FRACTION DECREASED
     Route: 048
     Dates: start: 20201210, end: 20201210
  17. RAMIPRIL. [Concomitant]
     Active Substance: RAMIPRIL
     Route: 048
     Dates: start: 20201207, end: 20201209
  18. BISOPROLOL [Concomitant]
     Active Substance: BISOPROLOL
     Route: 048
     Dates: start: 20201212, end: 20201217
  19. OMEPRAZOLE. [Concomitant]
     Active Substance: OMEPRAZOLE
     Indication: GASTROINTESTINAL DISORDER PROPHYLAXIS
     Route: 048
  20. CHLORPHENAMINE [Concomitant]
     Active Substance: CHLORPHENIRAMINE MALEATE
     Route: 042
     Dates: start: 20201110, end: 20201110
  21. NORMAL SALINE [Concomitant]
     Active Substance: SODIUM CHLORIDE
     Route: 042
     Dates: start: 20201110, end: 20201110
  22. ORAMORPH [Concomitant]
     Active Substance: MORPHINE SULFATE
     Indication: COUGH
     Route: 048
     Dates: start: 20200406

REACTIONS (1)
  - Immune-mediated myocarditis [Recovered/Resolved]

NARRATIVE: CASE EVENT DATE: 20201207
